FAERS Safety Report 21242328 (Version 1)
Quarter: 2022Q3

REPORT INFORMATION
  Report Type: Spontaneous
  Country: US (occurrence: US)
  Receive Date: 20220823
  Receipt Date: 20220823
  Transmission Date: 20221027
  Serious: No
  Sender: FDA-Public Use
  Company Number: US-SA-SAC20220822000480

PATIENT
  Sex: Female
  Weight: 123.46 kg

DRUGS (1)
  1. DUPIXENT [Suspect]
     Active Substance: DUPILUMAB
     Indication: Nasal polyps
     Dosage: 300 MG QOW
     Route: 058
     Dates: start: 202205

REACTIONS (6)
  - Somnolence [Recovering/Resolving]
  - Dizziness [Recovering/Resolving]
  - Anxiety [Recovering/Resolving]
  - COVID-19 [Unknown]
  - Ageusia [Not Recovered/Not Resolved]
  - Drug effective for unapproved indication [Unknown]
